FAERS Safety Report 6032391-2 (Version None)
Quarter: 2009Q1

REPORT INFORMATION
  Report Type: 
  Country: None (occurrence: None)
  Receive Date: 20090109
  Receipt Date: 20090105
  Transmission Date: 20090719
  Serious: Yes (Hospitalization, Other)
  Sender: FDA-Public Use
  Company Number: GB-BRISTOL-MYERS SQUIBB COMPANY-14445175

PATIENT
  Age: 72 Year
  Sex: Male

DRUGS (2)
  1. ERBITUX [Suspect]
     Indication: HEAD AND NECK CANCER
     Dosage: THERAPY DATES:08DEC08-UN;15DEC08-UN;22DEC08-UNKWN.
     Route: 041
     Dates: start: 20081208
  2. RADIATION THERAPY [Concomitant]

REACTIONS (1)
  - TUMOUR HAEMORRHAGE [None]
